FAERS Safety Report 9785530 (Version 1)
Quarter: 2013Q4

REPORT INFORMATION
  Report Type: Spontaneous
  Country: PL (occurrence: None)
  Receive Date: 20131224
  Receipt Date: 20131224
  Transmission Date: 20140711
  Serious: Yes (Other)
  Sender: FDA-Public Use
  Company Number: AUR-APL-2013-10631

PATIENT
  Age: 30 Year
  Sex: Female

DRUGS (5)
  1. METOPROLOL (METOPROLOL) [Suspect]
     Indication: ARRHYTHMIA
     Dosage: 50 MG (25 MG, 2 IN 1 D)
  2. DIGOXIN (DIGOXIN) [Suspect]
     Indication: ARRHYTHMIA
  3. WARFARIN (WARFARIN) [Suspect]
     Indication: ANTICOAGULANT THERAPY
     Dosage: AVERAGE OF 8-10 MG/DAY IN THREE DIVIDED DOSES
  4. POTASSIUM (POTASSIUM) [Suspect]
     Indication: PRODUCT USED FOR UNKNOWN INDICATION
     Dosage: 2 X 1, UNKNOWN
  5. MAGNESIUM (MAGNESIUM) [Suspect]
     Indication: PRODUCT USED FOR UNKNOWN INDICATION
     Dosage: 2 X 1, UNKNOWN

REACTIONS (2)
  - Drug ineffective [None]
  - Exposure during pregnancy [None]
